FAERS Safety Report 25883781 (Version 2)
Quarter: 2025Q4

REPORT INFORMATION
  Report Type: Spontaneous
  Country: US (occurrence: US)
  Receive Date: 20251006
  Receipt Date: 20251010
  Transmission Date: 20260118
  Serious: Yes (Hospitalization)
  Sender: RECKITT BENCKISER
  Company Number: US-PROD-AS2-212756134-20-25-USA-RB-0020682

PATIENT
  Age: 89 Year
  Sex: Female

DRUGS (1)
  1. MUCINEX [Suspect]
     Active Substance: GUAIFENESIN
     Indication: Product used for unknown indication
     Dosage: 1 DF, BID
     Route: 048
     Dates: start: 202509

REACTIONS (9)
  - Confusional state [Recovered/Resolved]
  - Dyspnoea [Recovering/Resolving]
  - Feeling abnormal [Recovering/Resolving]
  - Abdominal pain [Recovered/Resolved]
  - Erythema [Recovered/Resolved]
  - Wrong technique in product usage process [Recovering/Resolving]
  - Vomiting [Recovered/Resolved]
  - Abdominal tenderness [Recovering/Resolving]
  - Rhonchi [Recovering/Resolving]

NARRATIVE: CASE EVENT DATE: 20250901
